FAERS Safety Report 6763557-1 (Version None)
Quarter: 2010Q2

REPORT INFORMATION
  Report Type: 
  Country: None (occurrence: None)
  Receive Date: 20100610
  Receipt Date: 20100527
  Transmission Date: 20101027
  Serious: Yes (Hospitalization, Other)
  Sender: FDA-Public Use
  Company Number: US-ASTRAZENECA-2005UW13295

PATIENT
  Age: 590 Month
  Sex: Male
  Weight: 158.8 kg

DRUGS (17)
  1. SEROQUEL [Suspect]
     Indication: ANXIETY
     Dosage: 100 - 300 MG
     Route: 048
     Dates: start: 20000101
  2. THORAZINE [Concomitant]
     Dosage: '90'S APPROXIMATELY ONE MONTH'
  3. MIRTAZAPINE [Concomitant]
     Dates: start: 20060101
  4. CLONAZEPAM [Concomitant]
     Dates: start: 20030101
  5. TEMAZPAM [Concomitant]
     Dates: start: 20060101
  6. GABAPENTIN [Concomitant]
     Dates: start: 19960101
  7. TRILEPTAL [Concomitant]
     Dates: start: 20060601
  8. NEURONTIN [Concomitant]
     Route: 048
     Dates: start: 19990823
  9. GLUCOVANCE [Concomitant]
     Dosage: 2.5-500 MG TWO TIMES A DAY
     Route: 048
     Dates: start: 20040212
  10. ULTRAM [Concomitant]
     Indication: PAIN
     Route: 048
     Dates: start: 20021119
  11. AMBIEN [Concomitant]
     Indication: INSOMNIA
     Route: 048
     Dates: start: 19951208
  12. LEXAPRO [Concomitant]
     Route: 048
     Dates: start: 20040415
  13. ZOCOR [Concomitant]
     Indication: HYPERCHOLESTEROLAEMIA
     Route: 048
     Dates: start: 20050105
  14. LISINOPRIL [Concomitant]
     Indication: HYPERTENSION
     Route: 048
     Dates: start: 20040212
  15. CELEXA [Concomitant]
     Dates: start: 20010223
  16. SERENTIL [Concomitant]
     Indication: ANXIETY
     Dates: start: 20010223
  17. VALIUM [Concomitant]

REACTIONS (6)
  - DIABETIC KETOACIDOSIS [None]
  - DIABETIC NEUROPATHY [None]
  - HYPERGLYCAEMIA [None]
  - ILL-DEFINED DISORDER [None]
  - TYPE 1 DIABETES MELLITUS [None]
  - TYPE 2 DIABETES MELLITUS [None]
